FAERS Safety Report 13461621 (Version 1)
Quarter: 2017Q2

REPORT INFORMATION
  Report Type: Spontaneous
  Country: US (occurrence: US)
  Receive Date: 20170418
  Receipt Date: 20170418
  Transmission Date: 20170830
  Serious: Yes (Hospitalization)
  Sender: FDA-Public Use
  Company Number: None

PATIENT
  Age: 83 Year
  Sex: Male
  Weight: 58.97 kg

DRUGS (3)
  1. ASPIRIN. [Suspect]
     Active Substance: ASPIRIN
     Indication: CEREBROVASCULAR ACCIDENT
     Route: 048
     Dates: start: 20090903, end: 20170209
  2. WARFARIN [Suspect]
     Active Substance: WARFARIN
     Indication: ATRIAL FIBRILLATION
     Dates: start: 20051001, end: 20170209
  3. ASPIRIN. [Suspect]
     Active Substance: ASPIRIN
     Indication: ISCHAEMIC HEART DISEASE PROPHYLAXIS
     Route: 048
     Dates: start: 20090903, end: 20170209

REACTIONS (8)
  - Dizziness [None]
  - Gastric ulcer [None]
  - Upper gastrointestinal haemorrhage [None]
  - Gastric haemorrhage [None]
  - Blood pressure decreased [None]
  - Muscular weakness [None]
  - Haemoglobin decreased [None]
  - Fall [None]

NARRATIVE: CASE EVENT DATE: 20170209
